FAERS Safety Report 5280845-9 (Version None)
Quarter: 2007Q1

REPORT INFORMATION
  Report Type: 
  Country: None (occurrence: None)
  Receive Date: 20070329
  Receipt Date: 20070315
  Transmission Date: 20070707
  Serious: Yes (Hospitalization)
  Sender: FDA-Public Use
  Company Number: US-BRISTOL-MYERS SQUIBB COMPANY-13729876

PATIENT
  Age: 75 Year
  Sex: Male

DRUGS (5)
  1. PRINIVIL [Suspect]
     Indication: HYPERTENSION
     Route: 048
     Dates: start: 19990101
  2. COUMADIN [Suspect]
     Route: 048
     Dates: start: 20070207
  3. HYDRODIURIL [Suspect]
     Indication: POLYURIA
     Route: 048
     Dates: start: 19990101, end: 20070222
  4. ASPIRIN [Concomitant]
     Dates: end: 20070222
  5. SULFAMETHOXAZOLE + TRIMETHOPRIM [Concomitant]
     Indication: URINARY TRACT INFECTION
     Dates: start: 20070214, end: 20070222

REACTIONS (3)
  - COAGULOPATHY [None]
  - RENAL FAILURE [None]
  - UROSEPSIS [None]
